FAERS Safety Report 9252423 (Version 1)
Quarter: 2013Q2

REPORT INFORMATION
  Report Type: Report from Study
  Country: AR (occurrence: AR)
  Receive Date: 20130424
  Receipt Date: 20130424
  Transmission Date: 20140414
  Serious: Yes (Hospitalization, Other)
  Sender: FDA-Public Use
  Company Number: PHHY2013AR040186

PATIENT
  Age: 47 Year
  Sex: Male

DRUGS (2)
  1. DIOVAN D [Suspect]
     Indication: HYPERTENSION
     Dosage: 1 DF (80/12.5MG) DAILY
     Route: 048
     Dates: end: 20130217
  2. DIOVAN D [Suspect]
     Dosage: 1 DF (80/12.5MG) DAILY
     Route: 048
     Dates: start: 20130317

REACTIONS (4)
  - Convulsion [Recovered/Resolved]
  - Encephalitis [Recovered/Resolved]
  - Viral infection [Recovered/Resolved]
  - Muscular weakness [Not Recovered/Not Resolved]
